FAERS Safety Report 5345810-1 (Version None)
Quarter: 2007Q2

REPORT INFORMATION
  Report Type: 
  Country: None (occurrence: None)
  Receive Date: 20070430
  Receipt Date: 20070216
  Transmission Date: 20071010
  Serious: No
  Sender: FDA-Public Use
  Company Number: 260962

PATIENT
  Age: 77 Year
  Sex: Female
  Weight: 51.7 kg

DRUGS (2)
  1. LEVEMIR [Suspect]
     Indication: INSULIN-REQUIRING TYPE II DIABETES MELLITUS
     Dosage: 6 IU, QD, (IN AM), SUBCUTANEOUS
     Route: 058
     Dates: start: 20070122
  2. NOVOLOG [Suspect]
     Indication: INSULIN-REQUIRING TYPE II DIABETES MELLITUS
     Dosage: SEE IMAGE, SUBCUTANEOUS
     Route: 058
     Dates: start: 20070122

REACTIONS (1)
  - BLOOD GLUCOSE INCREASED [None]
